FAERS Safety Report 21703975 (Version 2)
Quarter: 2023Q4

REPORT INFORMATION
  Report Type: Report from Study
  Country: DE (occurrence: DE)
  Receive Date: 20221209
  Receipt Date: 20231013
  Transmission Date: 20240110
  Serious: Yes (Other)
  Sender: FDA-Public Use
  Company Number: DE-CELLTRION INC.-2022DE020771

PATIENT

DRUGS (1)
  1. TRASTUZUMAB [Suspect]
     Active Substance: TRASTUZUMAB
     Indication: HER2 negative breast cancer
     Dosage: 6 MILLIGRAM/KILOGRAM, Q3W
     Route: 042

REACTIONS (3)
  - Metastasis [Unknown]
  - Drug ineffective [Unknown]
  - Off label use [Unknown]
